FAERS Safety Report 5857274-X (Version None)
Quarter: 2008Q3

REPORT INFORMATION
  Report Type: 
  Country: None (occurrence: None)
  Receive Date: 20080822
  Receipt Date: 20080814
  Transmission Date: 20090109
  Serious: Yes (Other)
  Sender: FDA-Public Use
  Company Number: 032336

PATIENT
  Age: 22 Year
  Sex: Female
  Weight: 49 kg

DRUGS (2)
  1. PLAN B [Suspect]
     Indication: CONTRACEPTION
     Dosage: TABLET, ORAL;  1 TABLET, Q12HR, ORAL
     Route: 048
     Dates: start: 20080501, end: 20080501
  2. PLAN B [Suspect]
     Indication: CONTRACEPTION
     Dosage: TABLET, ORAL;  1 TABLET, Q12HR, ORAL
     Route: 048
     Dates: start: 20080809, end: 20080810

REACTIONS (5)
  - DRUG EXPOSURE DURING PREGNANCY [None]
  - DYSMENORRHOEA [None]
  - ECTOPIC PREGNANCY [None]
  - FEELING ABNORMAL [None]
  - VAGINAL HAEMORRHAGE [None]
